FAERS Safety Report 5678805-9 (Version None)
Quarter: 2008Q1

REPORT INFORMATION
  Report Type: 
  Country: None (occurrence: None)
  Receive Date: 20080324
  Receipt Date: 20080324
  Transmission Date: 20080703
  Serious: Yes (Other)
  Sender: FDA-Public Use
  Company Number: None

PATIENT
  Age: 42 Year
  Sex: Female
  Weight: 58.9676 kg

DRUGS (1)
  1. SINGULAIR [Suspect]
     Indication: HYPERSENSITIVITY
     Dosage: 1 TABLET ONCE A DAY PO
     Route: 048
     Dates: start: 20080220, end: 20080222

REACTIONS (4)
  - ABNORMAL DREAMS [None]
  - INSOMNIA [None]
  - PALPITATIONS [None]
  - PRURITUS [None]
